FAERS Safety Report 5030883-6 (Version None)
Quarter: 2006Q2

REPORT INFORMATION
  Report Type: 
  Country: None (occurrence: None)
  Receive Date: 20060503
  Receipt Date: 20060201
  Transmission Date: 20061013
  Serious: No
  Sender: FDA-Public Use
  Company Number: FACT0600056

PATIENT
  Age: 42 Year
  Sex: Female
  Weight: 52.6 kg

DRUGS (2)
  1. FACTIVE [Suspect]
     Indication: RESPIRATORY TRACT INFECTION BACTERIAL
     Dosage: 320 MG, QD, ORAL
     Route: 048
     Dates: start: 20060131, end: 20060131
  2. MAXZIDE [Concomitant]

REACTIONS (5)
  - AGEUSIA [None]
  - EAR DISCOMFORT [None]
  - FACE OEDEMA [None]
  - GLOSSITIS [None]
  - RASH GENERALISED [None]
